FAERS Safety Report 8957979 (Version 1)
Quarter: 2012Q4

REPORT INFORMATION
  Report Type: 
  Country: US (occurrence: US)
  Receive Date: 20121211
  Receipt Date: 20121211
  Transmission Date: 20130627
  Serious: No
  Sender: FDA-Public Use
  Company Number: US-ABBOTT-12P-163-0990068-00

PATIENT
  Age: 66 Year
  Sex: Female
  Weight: 72.64 kg

DRUGS (3)
  1. VICODIN ES [Suspect]
     Indication: PAIN
     Dosage: 1 tablet every 4 hours as needed
     Dates: start: 1980, end: 201208
  2. UNSPECIFIED INGREDIENT [Suspect]
     Indication: OEDEMA PERIPHERAL
  3. UNSPECIFIED INGREDIENT [Concomitant]
     Indication: THROMBOSIS PROPHYLAXIS

REACTIONS (4)
  - Gait disturbance [Not Recovered/Not Resolved]
  - Oedema peripheral [Not Recovered/Not Resolved]
  - Alopecia [Not Recovered/Not Resolved]
  - Pain [Not Recovered/Not Resolved]
